FAERS Safety Report 12701298 (Version 1)
Quarter: 2016Q3

REPORT INFORMATION
  Report Type: Report from Study
  Country: US (occurrence: US)
  Receive Date: 20160831
  Receipt Date: 20160831
  Transmission Date: 20161109
  Serious: Yes (Death)
  Sender: FDA-Public Use
  Company Number: US-ROCHE-ITM201502IM010548

PATIENT
  Age: 63 Year
  Sex: Female

DRUGS (31)
  1. GABAPENTIN. [Concomitant]
     Active Substance: GABAPENTIN
  2. NORCO [Concomitant]
     Active Substance: ACETAMINOPHEN\HYDROCODONE BITARTRATE
  3. LEXAPRO [Concomitant]
     Active Substance: ESCITALOPRAM OXALATE
  4. ASPIRIN. [Concomitant]
     Active Substance: ASPIRIN
  5. PROPOFOL. [Concomitant]
     Active Substance: PROPOFOL
  6. GLUCOSE [Concomitant]
     Active Substance: DEXTROSE
  7. METFORMIN [Concomitant]
     Active Substance: METFORMIN HYDROCHLORIDE
     Route: 065
  8. PLAVIX [Concomitant]
     Active Substance: CLOPIDOGREL BISULFATE
  9. ZOCOR [Concomitant]
     Active Substance: SIMVASTATIN
  10. HUMULIN R [Concomitant]
     Active Substance: INSULIN HUMAN
  11. TRAZODONE [Concomitant]
     Active Substance: TRAZODONE HYDROCHLORIDE
  12. ENOXAPARIN [Concomitant]
     Active Substance: ENOXAPARIN
  13. REGLAN [Concomitant]
     Active Substance: METOCLOPRAMIDE HYDROCHLORIDE
  14. LASIX [Concomitant]
     Active Substance: FUROSEMIDE
  15. MORPHINE [Concomitant]
     Active Substance: MORPHINE
  16. ABILIFY [Concomitant]
     Active Substance: ARIPIPRAZOLE
  17. SODIUM CHLORIDE. [Concomitant]
     Active Substance: SODIUM CHLORIDE
  18. APAP [Concomitant]
     Active Substance: ACETAMINOPHEN
  19. FUROSEMIDE. [Concomitant]
     Active Substance: FUROSEMIDE
  20. ALBUTEROL. [Concomitant]
     Active Substance: ALBUTEROL
  21. VERAPAMIL [Concomitant]
     Active Substance: VERAPAMIL HYDROCHLORIDE
  22. ESBRIET [Suspect]
     Active Substance: PIRFENIDONE
     Indication: IDIOPATHIC PULMONARY FIBROSIS
     Route: 048
     Dates: start: 201412
  23. DIOVAN HCT [Concomitant]
     Active Substance: HYDROCHLOROTHIAZIDE\VALSARTAN
  24. NITROSTAT [Concomitant]
     Active Substance: NITROGLYCERIN
  25. PRANDIN (UNITED STATES) [Concomitant]
  26. PANTOPRAZOLE [Concomitant]
     Active Substance: PANTOPRAZOLE SODIUM
  27. CEFTRIAXONE. [Concomitant]
     Active Substance: CEFTRIAXONE
     Route: 065
  28. LEVOFLOXACIN. [Concomitant]
     Active Substance: LEVOFLOXACIN
  29. DOCUSATE [Concomitant]
     Active Substance: DOCUSATE
  30. RANEXA [Concomitant]
     Active Substance: RANOLAZINE
  31. ZOFRAN [Concomitant]
     Active Substance: ONDANSETRON HYDROCHLORIDE

REACTIONS (1)
  - Death [Fatal]

NARRATIVE: CASE EVENT DATE: 201501
